FAERS Safety Report 23487738 (Version 3)
Quarter: 2024Q2

REPORT INFORMATION
  Report Type: Spontaneous
  Country: CN (occurrence: CN)
  Receive Date: 20240206
  Receipt Date: 20240529
  Transmission Date: 20240715
  Serious: Yes (Hospitalization, Other)
  Sender: FDA-Public Use
  Company Number: CN-ORGANON-O2402CHN000220

PATIENT
  Age: 36 Year
  Sex: Female
  Weight: 61.8 kg

DRUGS (5)
  1. FOLLITROPIN BETA [Suspect]
     Active Substance: FOLLITROPIN BETA
     Indication: Superovulation
     Dosage: 150 INTERNATIONAL UNIT, QD
     Route: 058
     Dates: start: 20240110, end: 20240117
  2. MENOTROPINS [Suspect]
     Active Substance: MENOTROPINS
     Indication: Superovulation
     Dosage: 150 INTERNATIONAL UNIT, QD
     Route: 030
     Dates: start: 20240110, end: 20240120
  3. CHORIONIC GONADOTROPHIN [Suspect]
     Active Substance: CHORIOGONADOTROPIN ALFA
     Indication: Superovulation
     Dosage: 2000 INTERNATIONAL UNIT, QD
     Route: 030
     Dates: start: 20240121, end: 20240121
  4. SODIUM CHLORIDE [Concomitant]
     Active Substance: SODIUM CHLORIDE
     Indication: Medication dilution
     Dosage: 2 MILLILITER, QD
     Route: 030
     Dates: start: 20240110, end: 20240120
  5. SODIUM CHLORIDE [Concomitant]
     Active Substance: SODIUM CHLORIDE
     Dosage: 2 MILLILITER, QD
     Route: 030
     Dates: start: 20240121, end: 20240121

REACTIONS (4)
  - Ovarian hyperstimulation syndrome [Recovering/Resolving]
  - Abdominal distension [Recovering/Resolving]
  - Abdominal pain [Recovering/Resolving]
  - Chest discomfort [Recovering/Resolving]

NARRATIVE: CASE EVENT DATE: 20240123
